FAERS Safety Report 7372369-X (Version None)
Quarter: 2011Q1

REPORT INFORMATION
  Report Type: 
  Country: None (occurrence: None)
  Receive Date: 20110324
  Receipt Date: 20110314
  Transmission Date: 20110831
  Serious: Yes (Hospitalization, Other)
  Sender: FDA-Public Use
  Company Number: JP-SANOFI-AVENTIS-2011SA004172

PATIENT
  Age: 65 Year
  Sex: Male

DRUGS (5)
  1. AVASTIN [Suspect]
     Indication: COLON CANCER METASTATIC
     Route: 041
     Dates: start: 20101019, end: 20101019
  2. FLUOROURACIL [Suspect]
     Indication: COLON CANCER METASTATIC
     Route: 041
  3. CALCIUM LEVOFOLINATE [Suspect]
     Indication: COLON CANCER METASTATIC
     Route: 041
  4. ELPLAT [Suspect]
     Indication: COLON CANCER METASTATIC
     Route: 041
  5. GASTER [Concomitant]

REACTIONS (4)
  - ABSCESS [None]
  - ILEAL STENOSIS [None]
  - GASTROINTESTINAL PERFORATION [None]
  - SMALL INTESTINAL PERFORATION [None]
